FAERS Safety Report 15403542 (Version 2)
Quarter: 2018Q3

REPORT INFORMATION
  Report Type: Report from Study
  Country: US (occurrence: US)
  Receive Date: 20180919
  Receipt Date: 20180927
  Transmission Date: 20181010
  Serious: Yes (Other)
  Sender: FDA-Public Use
  Company Number: US-MALLINCKRODT-T201803946

PATIENT
  Age: 50 Year
  Sex: Male

DRUGS (3)
  1. INSULIN [Concomitant]
     Active Substance: INSULIN NOS
     Indication: PRODUCT USED FOR UNKNOWN INDICATION
     Dosage: UNKNOWN
     Route: 065
  2. REPOSITORY CORTICOTROPIN INJECTION [Suspect]
     Active Substance: CORTICOTROPIN
     Indication: NEPHROTIC SYNDROME
     Dosage: UNKNOWN
     Route: 065
     Dates: start: 2017
  3. REPOSITORY CORTICOTROPIN INJECTION [Suspect]
     Active Substance: CORTICOTROPIN
     Dosage: 80 UNITS, TWICE WEEKLY FOR 6 MONTHS
     Route: 058
     Dates: start: 201808

REACTIONS (7)
  - Fatigue [Unknown]
  - Insomnia [Unknown]
  - Nausea [Unknown]
  - Dysgeusia [Unknown]
  - Loss of consciousness [Unknown]
  - Agitation [Unknown]
  - Malaise [Unknown]

NARRATIVE: CASE EVENT DATE: 2018
